FAERS Safety Report 25880473 (Version 4)
Quarter: 2025Q4

REPORT INFORMATION
  Report Type: Report from Study
  Country: CA (occurrence: CA)
  Receive Date: 20251004
  Receipt Date: 20251230
  Transmission Date: 20260118
  Serious: Yes (Other)
  Sender: CELLTRION
  Company Number: CA-CELLTRION INC.-2025CA035423

PATIENT

DRUGS (3)
  1. INFLIXIMAB-DYYB [Suspect]
     Active Substance: INFLIXIMAB-DYYB
     Indication: Psoriatic arthropathy
     Dosage: 375 MG EVERY 8 WEEKS (MAINTENANCE)
     Route: 042
     Dates: start: 20250926
  2. INFLIXIMAB-DYYB [Suspect]
     Active Substance: INFLIXIMAB-DYYB
     Dosage: MAINTENANCE - 5MG/KG EVERY 5 WEEKS
     Route: 042
     Dates: start: 20251111
  3. INFLIXIMAB-DYYB [Suspect]
     Active Substance: INFLIXIMAB-DYYB
     Dosage: MAINTENANCE - 5MG/KG EVERY 6 WEEKS
     Route: 042
     Dates: start: 20251222

REACTIONS (10)
  - Blood pressure diastolic increased [Recovering/Resolving]
  - Blood pressure systolic increased [Recovering/Resolving]
  - Psoriatic arthropathy [Not Recovered/Not Resolved]
  - Heart rate increased [Recovered/Resolved]
  - Pharyngeal swelling [Recovered/Resolved]
  - Dyspnoea [Recovered/Resolved]
  - Paraesthesia [Recovered/Resolved]
  - Off label use [Recovering/Resolving]
  - Off label use [Unknown]
  - Therapeutic product effect decreased [Unknown]

NARRATIVE: CASE EVENT DATE: 20250101
